FAERS Safety Report 18378014 (Version 1)
Quarter: 2020Q4

REPORT INFORMATION
  Report Type: Other
  Country: FR (occurrence: FR)
  Receive Date: 20201013
  Receipt Date: 20201013
  Transmission Date: 20210114
  Serious: Yes (Other)
  Sender: FDA-Public Use
  Company Number: FR-CADILA HEALTHCARE LIMITED-FR-ZYDUS-056714

PATIENT

DRUGS (5)
  1. ACETYLCYSTEINE. [Suspect]
     Active Substance: ACETYLCYSTEINE
     Indication: PROPHYLAXIS
     Dosage: UNK
     Route: 065
  2. ACICLOVIR [Suspect]
     Active Substance: ACYCLOVIR
     Indication: PROPHYLAXIS
     Dosage: UNK
     Route: 065
  3. TAZOCILLINE [Suspect]
     Active Substance: PIPERACILLIN SODIUM\TAZOBACTAM SODIUM
     Indication: INFECTION PROPHYLAXIS
     Route: 065
  4. ESMYA [Suspect]
     Active Substance: ULIPRISTAL ACETATE
     Indication: UTERINE LEIOMYOMA
     Route: 048
  5. ACETYLCYSTEINE. [Suspect]
     Active Substance: ACETYLCYSTEINE
     Indication: OFF LABEL USE
     Dosage: UNK
     Route: 065

REACTIONS (15)
  - Model for end stage liver disease score increased [Unknown]
  - Hepatic cirrhosis [Unknown]
  - Renal impairment [Unknown]
  - Encephalopathy [Unknown]
  - Necrosis [Unknown]
  - Liver disorder [Unknown]
  - Cholestasis [Unknown]
  - General physical health deterioration [Unknown]
  - Coagulopathy [Unknown]
  - Hepatitis [Unknown]
  - Liver transplant [Unknown]
  - Off label use [Unknown]
  - Jaundice [Unknown]
  - Inflammation [Unknown]
  - Condition aggravated [Unknown]
